FAERS Safety Report 7834131-0 (Version None)
Quarter: 2011Q4

REPORT INFORMATION
  Report Type: 
  Country: None (occurrence: None)
  Receive Date: 20111020
  Receipt Date: 20111004
  Transmission Date: 20120403
  Serious: Yes (Other)
  Sender: FDA-Public Use
  Company Number: 2011MA014921

PATIENT
  Age: 15 Year
  Weight: 66 kg

DRUGS (1)
  1. ACYCLOVIR [Suspect]
     Dosage: 15 MG/KG; Q8HR; IV
     Route: 042

REACTIONS (1)
  - RENAL FAILURE ACUTE [None]
